FAERS Safety Report 5903386-1 (Version None)
Quarter: 2008Q3

REPORT INFORMATION
  Report Type: 
  Country: None (occurrence: None)
  Receive Date: 20080926
  Receipt Date: 20080918
  Transmission Date: 20090109
  Serious: Yes (Death)
  Sender: FDA-Public Use
  Company Number: 2008US002433

PATIENT
  Age: 75 Year
  Sex: Male

DRUGS (12)
  1. AMBISOME [Suspect]
     Indication: SYSTEMIC CANDIDA
     Dosage: 150 MG, UID/QD, IV NOS
     Route: 042
     Dates: start: 20080229, end: 20080306
  2. AMBISOME [Suspect]
     Indication: SYSTEMIC CANDIDA
     Dosage: 150 MG, UID/QD, IV NOS
     Route: 042
     Dates: start: 20080314, end: 20080325
  3. MEROPEN(MEROPENEM TRIHYDRATE) [Suspect]
     Indication: DRUG USE FOR UNKNOWN INDICATION
     Dosage: 1.5 MG UID/QD, IV NOS
     Route: 042
     Dates: start: 20080228, end: 20080305
  4. MEROPEN(MEROPENEM TRIHYDRATE) [Suspect]
     Indication: DRUG USE FOR UNKNOWN INDICATION
     Dosage: 1.5 MG UID/QD, IV NOS
     Route: 042
     Dates: start: 20080318, end: 20080323
  5. CIPROFLOXACIN HCL [Suspect]
     Indication: DRUG USE FOR UNKNOWN INDICATION
     Dosage: 600 MG, UID/QD, IV NOS
     Route: 042
     Dates: start: 20080306, end: 20080312
  6. CIPROFLOXACIN HCL [Suspect]
     Indication: DRUG USE FOR UNKNOWN INDICATION
     Dosage: 600 MG, UID/QD, IV NOS
     Route: 042
     Dates: start: 20080324, end: 20080327
  7. CLINDAMYCIN HCL [Suspect]
     Indication: DRUG USE FOR UNKNOWN INDICATION
     Dosage: 1200 MG, UID, QD
     Dates: start: 20080306, end: 20080312
  8. CLINDAMYCIN HCL [Suspect]
     Indication: DRUG USE FOR UNKNOWN INDICATION
     Dosage: 1200 MG, UID, QD
     Dates: start: 20080324, end: 20080327
  9. ITRACONAZOLE [Concomitant]
  10. PRODIF (FOSFLUCONAZOLE) [Concomitant]
  11. MAXIPIME [Concomitant]
  12. SOLU-MEDROL [Concomitant]

REACTIONS (6)
  - ALANINE AMINOTRANSFERASE INCREASED [None]
  - ASPARTATE AMINOTRANSFERASE INCREASED [None]
  - BLOOD BILIRUBIN INCREASED [None]
  - BLOOD UREA INCREASED [None]
  - HEPATIC FUNCTION ABNORMAL [None]
  - JAUNDICE [None]
